FAERS Safety Report 21021253 (Version 7)
Quarter: 2022Q4

REPORT INFORMATION
  Report Type: Spontaneous
  Country: US (occurrence: US)
  Receive Date: 20220629
  Receipt Date: 20221018
  Transmission Date: 20230113
  Serious: No
  Sender: FDA-Public Use
  Company Number: US-BIOVITRUM-2022US08232

PATIENT
  Sex: Male
  Weight: 77 kg

DRUGS (4)
  1. DOPTELET [Suspect]
     Active Substance: AVATROMBOPAG MALEATE
     Indication: Immune thrombocytopenia
     Dates: start: 20220621
  2. DOPTELET [Suspect]
     Active Substance: AVATROMBOPAG MALEATE
     Indication: Thrombocytopenia
     Dates: start: 20220621
  3. DOPTELET [Suspect]
     Active Substance: AVATROMBOPAG MALEATE
     Dates: start: 20220704
  4. DOPTELET [Suspect]
     Active Substance: AVATROMBOPAG MALEATE
     Dosage: TAKING 1 TABLET ON MONDAY, WEDNESDAY AND FRIDAY.

REACTIONS (30)
  - Oropharyngeal pain [Unknown]
  - Arthritis [Unknown]
  - Oral mucosal blistering [Unknown]
  - Pharyngeal swelling [Unknown]
  - Rhinorrhoea [Unknown]
  - Sneezing [Unknown]
  - Cough [Unknown]
  - Arthropathy [Unknown]
  - Mean platelet volume increased [Unknown]
  - Pain in extremity [Unknown]
  - Nausea [Unknown]
  - Platelet count decreased [Recovered/Resolved]
  - Nasal congestion [Recovering/Resolving]
  - Ocular discomfort [Unknown]
  - Abdominal discomfort [Unknown]
  - Renal cyst [Unknown]
  - Hepatic cyst [Unknown]
  - Memory impairment [Unknown]
  - Mobility decreased [Unknown]
  - Joint swelling [Unknown]
  - Back pain [Unknown]
  - Back disorder [Unknown]
  - Affect lability [Unknown]
  - Product dose omission in error [Unknown]
  - Nasopharyngitis [Unknown]
  - Arthralgia [Unknown]
  - Hypersensitivity [Unknown]
  - Headache [Unknown]
  - Fatigue [Unknown]
  - Inappropriate schedule of product administration [Unknown]
